FAERS Safety Report 20055057 (Version 1)
Quarter: 2021Q4

REPORT INFORMATION
  Report Type: Report from Study
  Country: ES (occurrence: ES)
  Receive Date: 20211110
  Receipt Date: 20211110
  Transmission Date: 20220303
  Serious: Yes (Hospitalization)
  Sender: FDA-Public Use
  Company Number: ES-GILEAD-2021-0555739

PATIENT
  Sex: Female
  Weight: 71 kg

DRUGS (31)
  1. IDELALISIB [Suspect]
     Active Substance: IDELALISIB
     Indication: Follicular lymphoma
     Dosage: 1 DOSAGE FORM, BID
     Route: 048
     Dates: start: 20210316
  2. IDELALISIB [Suspect]
     Active Substance: IDELALISIB
     Dosage: 1 DOSAGE FORM, BID
     Route: 048
     Dates: start: 20190827, end: 20191127
  3. IDELALISIB [Suspect]
     Active Substance: IDELALISIB
     Dosage: 2 DOSAGE FORM, BID
     Route: 048
     Dates: start: 20180116, end: 20180228
  4. IDELALISIB [Suspect]
     Active Substance: IDELALISIB
     Dosage: 2 DOSAGE FORM, BID
     Route: 048
     Dates: start: 20191128, end: 20191216
  5. IDELALISIB [Suspect]
     Active Substance: IDELALISIB
     Dosage: 1 DOSAGE FORM, BID
     Route: 048
     Dates: start: 20191217, end: 20200120
  6. IDELALISIB [Suspect]
     Active Substance: IDELALISIB
     Dosage: 2 DOSAGE FORM, QD
     Route: 048
     Dates: start: 20200121, end: 20200127
  7. IDELALISIB [Suspect]
     Active Substance: IDELALISIB
     Dosage: 1 DOSAGE FORM, BID
     Route: 048
     Dates: start: 20200128, end: 20210127
  8. IDELALISIB [Suspect]
     Active Substance: IDELALISIB
     Dosage: 1 DOSAGE FORM, QD
     Route: 048
     Dates: start: 20190828, end: 20190828
  9. IDELALISIB [Suspect]
     Active Substance: IDELALISIB
     Dosage: 2 DOSAGE FORM, QD
     Route: 048
     Dates: start: 20210128, end: 20210215
  10. IDELALISIB [Suspect]
     Active Substance: IDELALISIB
     Dosage: 2 DOSAGE FORM, QD
     Route: 048
     Dates: start: 20180301, end: 20180410
  11. IDELALISIB [Suspect]
     Active Substance: IDELALISIB
     Dosage: 1 DOSAGE FORM, BID
     Route: 048
     Dates: start: 20180411, end: 20180827
  12. IDELALISIB [Suspect]
     Active Substance: IDELALISIB
     Dosage: 1 DOSAGE FORM, BID
     Route: 048
     Dates: start: 20180829, end: 20181111
  13. IDELALISIB [Suspect]
     Active Substance: IDELALISIB
     Dosage: 2 DOSAGE FORM, QD
     Route: 048
     Dates: start: 20181112, end: 20181218
  14. IDELALISIB [Suspect]
     Active Substance: IDELALISIB
     Dosage: 1 DOSAGE FORM, BID
     Route: 048
     Dates: start: 20181219, end: 20190111
  15. IDELALISIB [Suspect]
     Active Substance: IDELALISIB
     Dosage: 2 DOSAGE FORM, BID
     Route: 048
     Dates: start: 20190112, end: 20190114
  16. IDELALISIB [Suspect]
     Active Substance: IDELALISIB
     Dosage: 1 DOSAGE FORM, BID
     Route: 048
     Dates: start: 20190115, end: 20190725
  17. IDELALISIB [Suspect]
     Active Substance: IDELALISIB
     Dosage: 2 DOSAGE FORM, QD
     Route: 048
     Dates: start: 20190726, end: 20190826
  18. ATORVASTATIN CALCIUM [Concomitant]
     Active Substance: ATORVASTATIN CALCIUM
     Indication: Hypercholesterolaemia
     Route: 048
  19. SULFAMETHOXAZOLE\TRIMETHOPRIM [Concomitant]
     Active Substance: SULFAMETHOXAZOLE\TRIMETHOPRIM
     Route: 048
     Dates: start: 20181119
  20. IRBESARTAN [Concomitant]
     Active Substance: IRBESARTAN
     Indication: Hypertension
     Route: 048
  21. HYDROCHLOROTHIAZIDE [Concomitant]
     Active Substance: HYDROCHLOROTHIAZIDE
     Indication: Hypertension
     Route: 048
     Dates: start: 20191119
  22. HYDROCHLOROTHIAZIDE [Concomitant]
     Active Substance: HYDROCHLOROTHIAZIDE
     Indication: Oedema peripheral
     Dosage: UNK
     Route: 048
     Dates: start: 20180828
  23. ENOXAPARIN SODIUM [Concomitant]
     Active Substance: ENOXAPARIN SODIUM
     Indication: Pelvic fracture
     Route: 058
     Dates: start: 20200606
  24. ACETAMINOPHEN [Concomitant]
     Active Substance: ACETAMINOPHEN
     Indication: Pelvic fracture
     Route: 048
     Dates: start: 20200606
  25. METAMIZOL [Concomitant]
     Active Substance: METAMIZOLE SODIUM
     Indication: Pelvic fracture
     Route: 048
     Dates: start: 20200606
  26. BUDESONIDE [Concomitant]
     Active Substance: BUDESONIDE
     Indication: Diarrhoea
     Route: 048
     Dates: start: 20201215
  27. TRAMADOL [Concomitant]
     Active Substance: TRAMADOL
     Indication: Osteoarthritis
     Route: 048
     Dates: start: 20210330
  28. ARCOXIA [Concomitant]
     Active Substance: ETORICOXIB
     Indication: Osteoarthritis
     Route: 048
     Dates: start: 20210405
  29. MELATONIN [Concomitant]
     Active Substance: MELATONIN
     Indication: Insomnia
     Route: 048
  30. METAMIZOLE MAGNESIUM [Concomitant]
     Active Substance: METAMIZOLE MAGNESIUM
     Indication: Osteoarthritis
     Route: 048
     Dates: start: 20210513
  31. METAMIZOLE MAGNESIUM [Concomitant]
     Active Substance: METAMIZOLE MAGNESIUM
     Indication: Back pain
     Route: 048
     Dates: start: 20180503

REACTIONS (1)
  - Generalised oedema [Not Recovered/Not Resolved]

NARRATIVE: CASE EVENT DATE: 20210916
